FAERS Safety Report 14474137 (Version 1)
Quarter: 2018Q1

REPORT INFORMATION
  Report Type: Spontaneous
  Country: US (occurrence: US)
  Receive Date: 20180131
  Receipt Date: 20180131
  Transmission Date: 20180509
  Serious: Yes (Life-Threatening, Hospitalization)
  Sender: FDA-Public Use
  Company Number: None

PATIENT
  Age: 46 Year
  Sex: Male
  Weight: 123.29 kg

DRUGS (2)
  1. PIPERACILLIN/TAZOBACTAM [Suspect]
     Active Substance: PIPERACILLIN SODIUM\TAZOBACTAM SODIUM
     Indication: SINUSITIS
     Route: 042
     Dates: start: 20170104, end: 20170104
  2. PIPERACILLIN/TAZOBACTAM [Suspect]
     Active Substance: PIPERACILLIN SODIUM\TAZOBACTAM SODIUM
     Indication: UPPER RESPIRATORY TRACT INFECTION
     Route: 042
     Dates: start: 20170104, end: 20170104

REACTIONS (13)
  - Tremor [None]
  - Stridor [None]
  - Hypoxia [None]
  - Hypernatraemia [None]
  - Urinary retention [None]
  - Productive cough [None]
  - Anaphylactic reaction [None]
  - Sinus congestion [None]
  - Diarrhoea [None]
  - Cardio-respiratory arrest [None]
  - Angioedema [None]
  - Sinus tachycardia [None]
  - Hypertension [None]

NARRATIVE: CASE EVENT DATE: 20170104
